FAERS Safety Report 6222012-8 (Version None)
Quarter: 2009Q2

REPORT INFORMATION
  Report Type: 
  Country: None (occurrence: None)
  Receive Date: 20090608
  Receipt Date: 20090608
  Transmission Date: 20091009
  Serious: Yes (Hospitalization)
  Sender: FDA-Public Use
  Company Number: None

PATIENT
  Age: 35 Year
  Sex: Female
  Weight: 100 kg

DRUGS (1)
  1. MIRENA [Suspect]

REACTIONS (8)
  - ABDOMINAL PAIN LOWER [None]
  - ANOREXIA [None]
  - CERVICITIS [None]
  - CHILLS [None]
  - HOT FLUSH [None]
  - INSOMNIA [None]
  - INTRAUTERINE INFECTION [None]
  - MALAISE [None]
